FAERS Safety Report 22775900 (Version 4)
Quarter: 2023Q4

REPORT INFORMATION
  Report Type: Report from Study
  Country: US (occurrence: US)
  Receive Date: 20230802
  Receipt Date: 20231108
  Transmission Date: 20240110
  Serious: Yes (Other)
  Sender: FDA-Public Use
  Company Number: US-002147023-NVSC2023US167927

PATIENT
  Age: 57 Year
  Sex: Male
  Weight: 110.6 kg

DRUGS (21)
  1. KESIMPTA [Suspect]
     Active Substance: OFATUMUMAB
     Indication: Relapsing-remitting multiple sclerosis
     Dosage: 20 MG, QMO
     Route: 058
     Dates: start: 20230426
  2. ASPIRIN [Concomitant]
     Active Substance: ASPIRIN
     Indication: Product used for unknown indication
     Dosage: 81 MG, QD
     Route: 065
     Dates: start: 20201213
  3. TESSALON [Concomitant]
     Active Substance: BENZONATATE
     Indication: Cough
     Dosage: 1 DOSAGE FORM, BID
     Route: 048
     Dates: start: 20180524
  4. SYMBICORT [Concomitant]
     Active Substance: BUDESONIDE\FORMOTEROL FUMARATE DIHYDRATE
     Indication: Dyspnoea
     Dosage: 2 DOSAGE FORM, BID (2 PUFFS INTO 2 LUNGS)
     Dates: start: 20190927
  5. COREG [Concomitant]
     Active Substance: CARVEDILOL
     Indication: Product used for unknown indication
     Dosage: 1 DOSAGE FORM, BID
     Route: 048
     Dates: start: 20200522
  6. BENTYL [Concomitant]
     Active Substance: DICYCLOMINE HYDROCHLORIDE
     Indication: Abdominal pain upper
     Dosage: 1 DOSAGE FORM, QID
     Route: 048
     Dates: start: 20180712
  7. VITAMIN D2 [Concomitant]
     Active Substance: ERGOCALCIFEROL
     Indication: Product used for unknown indication
     Dosage: 1 DOSAGE FORM, QW
     Route: 048
     Dates: start: 20230605
  8. TRICOR [Concomitant]
     Active Substance: FENOFIBRATE
     Indication: Product used for unknown indication
     Dosage: 1 DOSAGE FORM
     Route: 048
     Dates: start: 20230830
  9. NEURONTIN [Concomitant]
     Active Substance: GABAPENTIN
     Indication: Neuralgia
     Dosage: 2 DOSAGE FORM, TID
     Route: 048
     Dates: start: 20231002
  10. NORCO [Concomitant]
     Active Substance: ACETAMINOPHEN\HYDROCODONE BITARTRATE
     Indication: Product used for unknown indication
     Dosage: 1 DOSAGE FORM
     Route: 065
     Dates: start: 20220410
  11. HIZENTRA [Concomitant]
     Active Substance: HUMAN IMMUNOGLOBULIN G
     Indication: Product used for unknown indication
     Dosage: 200 MG/KG, QW (20% SOLUTION)
     Route: 058
     Dates: start: 20230728
  12. PRINIVIL [Concomitant]
     Active Substance: LISINOPRIL
     Indication: Product used for unknown indication
     Dosage: 1 DOSAGE FORM, QD
     Route: 048
     Dates: start: 20200727
  13. ZESTRIL [Concomitant]
     Active Substance: LISINOPRIL
     Indication: Product used for unknown indication
     Dosage: 1 DOSAGE FORM, QD
     Route: 048
     Dates: start: 20200727
  14. ANTIVERT [Concomitant]
     Active Substance: MECLIZINE HYDROCHLORIDE
     Indication: Dizziness
     Dosage: 0.5 DOSAGE FORM, TID
     Route: 048
  15. ROBAXIN [Concomitant]
     Active Substance: METHOCARBAMOL
     Indication: Product used for unknown indication
     Dosage: 1 DOSAGE FORM, BID
     Route: 065
     Dates: start: 20220307
  16. PROVIGIL [Concomitant]
     Active Substance: MODAFINIL
     Indication: Fatigue
     Dosage: 1 DOSAGE FORM, BID
     Route: 048
     Dates: start: 20231002
  17. SINGULAIR [Concomitant]
     Active Substance: MONTELUKAST SODIUM
     Indication: Product used for unknown indication
     Dosage: 1 DOSAGE FORM, QN
     Route: 048
     Dates: start: 20180215
  18. OCRELIZUMAB [Concomitant]
     Active Substance: OCRELIZUMAB
     Indication: Multiple sclerosis
     Dosage: UNK (INFUSE 20MLS (600 MG TOTAL) INTO THE VEIN EVERY 6 MONTHS)
     Route: 042
     Dates: start: 20231002
  19. DELTASONE [Concomitant]
     Active Substance: PREDNISONE
     Indication: Product used for unknown indication
     Dosage: UNK
     Route: 065
     Dates: start: 20210801, end: 20231018
  20. PROMETHAZINE [Concomitant]
     Active Substance: PROMETHAZINE HYDROCHLORIDE
     Indication: Nausea
     Dosage: 1 DOSAGE FORM, Q8H
     Route: 048
     Dates: start: 20180712
  21. RESTORIL [Concomitant]
     Active Substance: TEMAZEPAM
     Indication: Sleep disorder
     Dosage: 1 DOSAGE FORM, QN
     Route: 048
     Dates: start: 20230404, end: 20231016

REACTIONS (5)
  - Multiple sclerosis [Unknown]
  - Feeling abnormal [Unknown]
  - Brain fog [Recovered/Resolved]
  - Blood cholesterol increased [Unknown]
  - Drug ineffective [Unknown]

NARRATIVE: CASE EVENT DATE: 20230501
